FAERS Safety Report 9794512 (Version 2)
Quarter: 2014Q1

REPORT INFORMATION
  Report Type: Spontaneous
  Country: US (occurrence: US)
  Receive Date: 20140102
  Receipt Date: 20140130
  Transmission Date: 20141002
  Serious: Yes (Other)
  Sender: FDA-Public Use
  Company Number: US-AMGEN-USASP2013091230

PATIENT
  Age: 58 Year
  Sex: Female
  Weight: 97.51 kg

DRUGS (17)
  1. ENBREL [Suspect]
     Indication: RHEUMATOID ARTHRITIS
     Dosage: UNK
     Route: 065
  2. ORENCIA [Suspect]
     Indication: PRODUCT USED FOR UNKNOWN INDICATION
     Dosage: UNK
     Route: 065
  3. IBUPROFEN [Suspect]
     Indication: MUSCULOSKELETAL STIFFNESS
     Dosage: UNK
     Route: 065
  4. TOPROL [Concomitant]
     Dosage: 50 MG, QD
  5. SPIRONOLACTONE [Concomitant]
     Dosage: 50 MG, QD
  6. LOSARTAN [Concomitant]
     Dosage: 50 MG, QD
  7. XANAX [Concomitant]
     Dosage: 0.25 MG, QHS
  8. PREMARIN [Concomitant]
     Dosage: 0.125 MG, QD
  9. MELOXICAM [Concomitant]
     Dosage: 15 MG, QD
  10. KLOR-CON [Concomitant]
     Dosage: 20 MEQ, QD
  11. FENTANYL [Concomitant]
     Dosage: UNK
  12. VITAMIN D3 [Concomitant]
     Dosage: 4000 IU, QD
  13. FOLIC ACID [Concomitant]
     Dosage: 2 MG, QD
  14. DIOVAN [Concomitant]
     Dosage: 80 MG, QD
  15. LASIX                              /00032601/ [Concomitant]
     Dosage: UNK, PRN
  16. METHOTREXATE [Concomitant]
     Dosage: UNK, QWK
  17. METHOTREXATE [Concomitant]
     Dosage: 30 MG, 15 ON SUNDAY AND 15 ON WEDNESDAY
     Route: 058

REACTIONS (29)
  - Atrial fibrillation [Unknown]
  - Oedema [Unknown]
  - Tachycardia [Unknown]
  - Drug hypersensitivity [Unknown]
  - Pain [Unknown]
  - Muscular weakness [Unknown]
  - Grip strength decreased [Unknown]
  - Feeling abnormal [Unknown]
  - Disability [Unknown]
  - Weight increased [Unknown]
  - Fatigue [Unknown]
  - Night sweats [Unknown]
  - Dyspepsia [Unknown]
  - Muscle spasms [Unknown]
  - Varicose vein [Unknown]
  - Hypoaesthesia [Unknown]
  - Arthralgia [Unknown]
  - Joint stiffness [Unknown]
  - Joint swelling [Unknown]
  - Alopecia [Unknown]
  - Synovitis [Unknown]
  - Crepitations [Unknown]
  - Muscle atrophy [Unknown]
  - Wrist deformity [Unknown]
  - Sleep disorder [Unknown]
  - Haemorrhage [Unknown]
  - Musculoskeletal stiffness [Unknown]
  - Periarthritis [Unknown]
  - Paraesthesia [Unknown]
